FAERS Safety Report 17200439 (Version 2)
Quarter: 2020Q1

REPORT INFORMATION
  Report Type: Spontaneous
  Country: CN (occurrence: CN)
  Receive Date: 20191226
  Receipt Date: 20200109
  Transmission Date: 20200409
  Serious: Yes (Death, Life-Threatening, Hospitalization, Other)
  Sender: FDA-Public Use
  Company Number: CN-ACCORD-167467

PATIENT
  Age: 25 Year
  Sex: Male

DRUGS (1)
  1. CLOZAPINE. [Suspect]
     Active Substance: CLOZAPINE
     Indication: BIPOLAR DISORDER
     Dosage: 100 MG CLOZAPINE DAILY
     Route: 048

REACTIONS (7)
  - Coronary artery thrombosis [Fatal]
  - Hypercholesterolaemia [Not Recovered/Not Resolved]
  - Obesity [Not Recovered/Not Resolved]
  - Myocardial infarction [Fatal]
  - Bundle branch block [Fatal]
  - Hyperhomocysteinaemia [Not Recovered/Not Resolved]
  - Hypertriglyceridaemia [Not Recovered/Not Resolved]
